FAERS Safety Report 5243071-5 (Version None)
Quarter: 2007Q1

REPORT INFORMATION
  Report Type: 
  Country: None (occurrence: None)
  Receive Date: 20070221
  Receipt Date: 20070209
  Transmission Date: 20070707
  Serious: Yes (Hospitalization)
  Sender: FDA-Public Use
  Company Number: FR-BOEHRINGER INGELHEIM PHARMACEUTICALS, INC.-2007-DE-01040BY

PATIENT
  Age: 74 Year
  Sex: Male

DRUGS (9)
  1. PRITOR [Suspect]
     Indication: DRUG USE FOR UNKNOWN INDICATION
     Route: 048
  2. FONZYLANE [Suspect]
     Indication: DRUG USE FOR UNKNOWN INDICATION
     Route: 048
     Dates: end: 20061201
  3. FONZYLANE [Suspect]
     Route: 048
     Dates: start: 20061201
  4. MIANSERINE [Suspect]
     Indication: DRUG USE FOR UNKNOWN INDICATION
     Route: 048
     Dates: end: 20061226
  5. ARTANE [Suspect]
     Indication: DRUG USE FOR UNKNOWN INDICATION
     Dates: end: 20061226
  6. DEPAKENE [Suspect]
     Indication: DRUG USE FOR UNKNOWN INDICATION
     Dates: start: 20020815
  7. TEMESTA 2,5 [Suspect]
     Indication: DRUG USE FOR UNKNOWN INDICATION
  8. EQUANIL [Concomitant]
     Indication: DRUG USE FOR UNKNOWN INDICATION
  9. KARDEGIC [Concomitant]
     Indication: DRUG USE FOR UNKNOWN INDICATION

REACTIONS (1)
  - EPILEPSY [None]
